FAERS Safety Report 9057255 (Version 1)
Quarter: 2013Q1

REPORT INFORMATION
  Report Type: Spontaneous
  Country: FR (occurrence: FR)
  Receive Date: 20130131
  Receipt Date: 20130131
  Transmission Date: 20140127
  Serious: Yes (Other)
  Sender: FDA-Public Use
  Company Number: FR-GLAXOSMITHKLINE-B0856815A

PATIENT
  Sex: Male

DRUGS (6)
  1. REVOLADE [Suspect]
     Indication: THROMBOCYTOPENIA
     Dosage: 75MG PER DAY
     Route: 048
     Dates: start: 20120405
  2. NILEVAR [Suspect]
     Indication: BONE MARROW FAILURE
     Dosage: 20MG THREE TIMES PER DAY
     Route: 048
     Dates: start: 20120515, end: 20120605
  3. CORTANCYL [Suspect]
     Indication: PRODUCT USED FOR UNKNOWN INDICATION
     Dosage: 10MG PER DAY
     Route: 048
     Dates: start: 201204
  4. CACIT VITAMINE D3 [Concomitant]
     Indication: PRODUCT USED FOR UNKNOWN INDICATION
     Route: 048
  5. UVEDOSE [Concomitant]
     Indication: PRODUCT USED FOR UNKNOWN INDICATION
     Dosage: 1UNIT PER DAY
     Route: 048
     Dates: start: 201204
  6. DANATROL [Concomitant]
     Indication: THROMBOCYTOPENIA
     Route: 065
     Dates: start: 20120415

REACTIONS (8)
  - Transaminases increased [Unknown]
  - Drug ineffective [Unknown]
  - Off label use [Unknown]
  - Alanine aminotransferase increased [None]
  - Aspartate aminotransferase increased [None]
  - Bradycardia [None]
  - Shock [None]
  - Pancreatitis acute [None]
